FAERS Safety Report 9737183 (Version 1)
Quarter: 2013Q4

REPORT INFORMATION
  Report Type: Spontaneous
  Country: CH (occurrence: CH)
  Receive Date: 20131206
  Receipt Date: 20131206
  Transmission Date: 20140711
  Serious: Yes (Hospitalization)
  Sender: FDA-Public Use
  Company Number: CH-009507513-1311CHE013034

PATIENT
  Age: 79 Year
  Sex: Male

DRUGS (15)
  1. REMERON [Suspect]
     Indication: DEPRESSION
     Dosage: UNK
     Route: 048
  2. MARCOUMAR [Suspect]
     Indication: ATRIAL FIBRILLATION
     Dosage: UNK, PRN
     Route: 048
     Dates: start: 20120814
  3. CITALOPRAM [Suspect]
     Indication: DEPRESSION
     Dosage: 20 MG, QD
     Route: 048
  4. BUDENOFALK [Suspect]
     Indication: PROCTITIS ULCERATIVE
     Dosage: 3 MG, TID
     Route: 048
     Dates: start: 20120814
  5. ASPIRIN CARDIO [Suspect]
     Dosage: 100 MG, QD
     Route: 048
     Dates: start: 20120814
  6. DIAMICRON [Suspect]
     Indication: TYPE 2 DIABETES MELLITUS
     Dosage: 80 MG, QD
     Route: 048
     Dates: start: 20120814
  7. ESOMEP [Concomitant]
     Dosage: 40 MG, QD
     Route: 048
     Dates: start: 20120810, end: 20120814
  8. NORVASC [Concomitant]
     Dosage: 0.5 DF, QD
  9. BECOZYM [Concomitant]
     Indication: ANAEMIA
     Dosage: 1 DF, QD
     Route: 048
     Dates: end: 201208
  10. DEPONIT [Concomitant]
     Dosage: 1 DF, QD
     Route: 048
  11. TORASEM [Concomitant]
     Dosage: 0.5 DF, QD
     Route: 048
  12. ATACAND [Concomitant]
     Indication: ESSENTIAL HYPERTENSION
     Dosage: 0.5 DF, QD
     Route: 048
  13. EUTHYROX [Concomitant]
     Indication: POST PROCEDURAL HYPOTHYROIDISM
     Dosage: 1 DF, QD
     Route: 048
  14. CONCOR [Concomitant]
     Indication: ESSENTIAL HYPERTENSION
     Dosage: 1 DF, QD
     Route: 048
     Dates: end: 20120814
  15. PRAVALOTIN [Concomitant]
     Dosage: 0.5 DF, QD
     Route: 048

REACTIONS (2)
  - Gastrointestinal haemorrhage [Recovered/Resolved]
  - Melaena [Recovered/Resolved]
